FAERS Safety Report 5951564-8 (Version None)
Quarter: 2008Q4

REPORT INFORMATION
  Report Type: 
  Country: None (occurrence: None)
  Receive Date: 20081113
  Receipt Date: 20081030
  Transmission Date: 20090506
  Serious: Yes (Life-Threatening)
  Sender: FDA-Public Use
  Company Number: PHHY2008JP23691

PATIENT
  Sex: Male
  Weight: 58 kg

DRUGS (13)
  1. DIOVAN [Suspect]
     Indication: HYPERTENSION
     Dosage: UNK
     Route: 048
     Dates: start: 20070914, end: 20080627
  2. KOBANIFATE L [Concomitant]
     Indication: HYPERTENSION
     Dosage: 20 MG
     Route: 048
     Dates: end: 20070914
  3. ATELEC [Concomitant]
     Indication: HYPERTENSION
     Dosage: 5 MG
     Route: 048
     Dates: start: 20071109
  4. ATELEC [Concomitant]
     Dosage: 10 MG
     Route: 048
     Dates: start: 20071109
  5. ATELEC [Concomitant]
     Dosage: 20 MG
     Route: 048
     Dates: start: 20071109
  6. ATELEC [Concomitant]
     Dosage: UNK
  7. ATELEC [Concomitant]
     Dosage: UNK
  8. AMARYL [Concomitant]
     Dosage: 1 MG
     Route: 048
     Dates: start: 20070914, end: 20080627
  9. AMARYL [Concomitant]
     Dosage: 2 MG
     Route: 048
     Dates: start: 20070914, end: 20080627
  10. AMARYL [Concomitant]
     Dosage: 1 MG
     Route: 048
     Dates: start: 20070914, end: 20080627
  11. BEZATOL - SLOW RELEASE [Concomitant]
     Dosage: 400 MG
     Route: 048
     Dates: start: 20080111, end: 20080627
  12. SEIBULE [Concomitant]
     Dosage: 75 MG
     Route: 048
     Dates: start: 20080208, end: 20080627
  13. SEIBULE [Concomitant]
     Dosage: 150 MG
     Route: 048
     Dates: start: 20080208, end: 20080627

REACTIONS (10)
  - ABDOMINAL NEOPLASM [None]
  - BLOOD CREATININE ABNORMAL [None]
  - BLOOD GLUCOSE INCREASED [None]
  - BLOOD PRESSURE DIASTOLIC INCREASED [None]
  - BLOOD PRESSURE INCREASED [None]
  - BLOOD PRESSURE SYSTOLIC INCREASED [None]
  - BLOOD TRIGLYCERIDES INCREASED [None]
  - BLOOD URIC ACID [None]
  - GLUCOSE URINE PRESENT [None]
  - GLYCOSYLATED HAEMOGLOBIN INCREASED [None]
